FAERS Safety Report 23428397 (Version 2)
Quarter: 2024Q1

REPORT INFORMATION
  Report Type: Spontaneous
  Country: US (occurrence: US)
  Receive Date: 20240122
  Receipt Date: 20240219
  Transmission Date: 20240409
  Serious: Yes (Hospitalization, Other)
  Sender: FDA-Public Use
  Company Number: US-AMGEN-USASP2024010126

PATIENT
  Age: 68 Year
  Sex: Male
  Weight: 113.4 kg

DRUGS (14)
  1. REPATHA [Suspect]
     Active Substance: EVOLOCUMAB
     Indication: Blood cholesterol abnormal
     Dosage: 140 MILLIGRAM PER MILLILITRE, Q2WK
     Route: 058
     Dates: start: 20231001
  2. NEXIUM [Concomitant]
     Active Substance: ESOMEPRAZOLE MAGNESIUM
     Dosage: UNK UNK, QD (20 MG PACK) (1 PACKET BY MOUTH DAILY)
     Route: 048
  3. TYLENOL [Concomitant]
     Active Substance: ACETAMINOPHEN
     Dosage: 2 UNIT, Q6H (325 MG) (2 TABLETS BY MOUTH EVERY 6 HOURS)
     Route: 048
  4. CLARITIN [Concomitant]
     Active Substance: LORATADINE
     Indication: Pain
     Dosage: 1 UNIT, QD (10 MG CAPSULE)
     Route: 048
  5. ACETAMINOPHEN\CHLORPHENIRAMINE MALEATE\PHENYLEPHRINE HYDROCHLORIDE [Concomitant]
     Active Substance: ACETAMINOPHEN\CHLORPHENIRAMINE MALEATE\PHENYLEPHRINE HYDROCHLORIDE
     Route: 048
  6. CATAPRES [Concomitant]
     Active Substance: CLONIDINE HYDROCHLORIDE
     Dosage: 1 UNIT, BID (0.1 MG TABLET 2 TIMES DAILY)
     Route: 048
  7. SALMON OIL 1000 [Concomitant]
     Route: 048
  8. VITAMINS [Concomitant]
     Active Substance: VITAMINS
     Dosage: UNK
     Route: 048
  9. CRANBERRY [Concomitant]
     Active Substance: CRANBERRY
     Dosage: UNK (500 MG CAPSULE)
  10. CIALIS [Concomitant]
     Active Substance: TADALAFIL
     Dosage: 1 UNIT, QD (5 MG TABLET)
     Route: 048
  11. DOXAZOSIN MESYLATE [Concomitant]
     Active Substance: DOXAZOSIN MESYLATE
     Dosage: 8 MILLIGRAM, QD
     Route: 048
  12. HERBALS\SAW PALMETTO [Concomitant]
     Active Substance: HERBALS\SAW PALMETTO
     Dosage: UNK UNK, BID
     Route: 048
  13. PLAVIX [Concomitant]
     Active Substance: CLOPIDOGREL BISULFATE
     Dosage: 1 UNIT, QD (75 MG TABLET)
     Route: 048
  14. PROSCAR [Concomitant]
     Active Substance: FINASTERIDE
     Dosage: 1 UNIT, QD (5 MG TABLET)
     Route: 048

REACTIONS (5)
  - Angioedema [Recovering/Resolving]
  - Blood chloride increased [Unknown]
  - Blood creatinine increased [Unknown]
  - Glomerular filtration rate decreased [Unknown]
  - Blood glucose increased [Unknown]

NARRATIVE: CASE EVENT DATE: 20231225
